FAERS Safety Report 5284833-8 (Version None)
Quarter: 2007Q1

REPORT INFORMATION
  Report Type: 
  Country: None (occurrence: None)
  Receive Date: 20070328
  Receipt Date: 20070319
  Transmission Date: 20070707
  Serious: Yes (Hospitalization)
  Sender: FDA-Public Use
  Company Number: 2007-156045-NL

PATIENT
  Age: 55 Year
  Sex: Female

DRUGS (4)
  1. MIRTAZAPINE [Suspect]
     Dosage: 15 MG/30 MG/45 MG ORAL
     Route: 048
     Dates: start: 20061103, end: 20061112
  2. MIRTAZAPINE [Suspect]
     Dosage: 15 MG/30 MG/45 MG ORAL
     Route: 048
     Dates: start: 20061113, end: 20061130
  3. MIRTAZAPINE [Suspect]
     Dosage: 15 MG/30 MG/45 MG ORAL
     Route: 048
     Dates: start: 20061102
  4. PROPRANOLOL HYDROCHLORIDE [Concomitant]

REACTIONS (2)
  - DRUG EFFECT DECREASED [None]
  - RESTLESS LEGS SYNDROME [None]
